FAERS Safety Report 9692350 (Version 2)
Quarter: 2013Q4

REPORT INFORMATION
  Report Type: Spontaneous
  Country: US (occurrence: US)
  Receive Date: 20131118
  Receipt Date: 20131209
  Transmission Date: 20140711
  Serious: No
  Sender: FDA-Public Use
  Company Number: US-PFIZER INC-2013325680

PATIENT
  Age: 37 Year
  Sex: Female
  Weight: 66.67 kg

DRUGS (1)
  1. CHANTIX [Suspect]
     Indication: SMOKING CESSATION THERAPY
     Dosage: 0.5 MG, DAILY
     Dates: start: 201310, end: 20131021

REACTIONS (3)
  - Nausea [Recovering/Resolving]
  - Abdominal discomfort [Unknown]
  - Drug ineffective [Unknown]
